FAERS Safety Report 6312393-9 (Version None)
Quarter: 2009Q3

REPORT INFORMATION
  Report Type: 
  Country: None (occurrence: None)
  Receive Date: 20090813
  Receipt Date: 20090731
  Transmission Date: 20100115
  Serious: Yes (Death)
  Sender: FDA-Public Use
  Company Number: DE-GDP-09406389

PATIENT
  Sex: Male

DRUGS (1)
  1. METVIXIA [Suspect]
     Indication: ACTINIC KERATOSIS
     Dosage: TOPICAL
     Route: 061
     Dates: start: 20070101, end: 20070301

REACTIONS (2)
  - GASTRIC CANCER [None]
  - METASTASES TO LIVER [None]
